FAERS Safety Report 19444021 (Version 5)
Quarter: 2022Q1

REPORT INFORMATION
  Report Type: Spontaneous
  Country: US (occurrence: US)
  Receive Date: 20210621
  Receipt Date: 20220106
  Transmission Date: 20220424
  Serious: No
  Sender: FDA-Public Use
  Company Number: US-SHIONOGI, INC-2021000208

PATIENT
  Sex: Female

DRUGS (2)
  1. FETROJA [Suspect]
     Active Substance: CEFIDEROCOL SULFATE TOSYLATE
     Indication: Product used for unknown indication
     Dosage: 2 G OVER 1 HR INFUSION
     Route: 042
     Dates: start: 20210513, end: 202106
  2. FETROJA [Suspect]
     Active Substance: CEFIDEROCOL SULFATE TOSYLATE
     Dosage: 2 G OVER 3 HOUR INFUSION
     Route: 042
     Dates: start: 202105

REACTIONS (2)
  - Incorrect product administration duration [Unknown]
  - No adverse event [Unknown]

NARRATIVE: CASE EVENT DATE: 20210513
